FAERS Safety Report 17176847 (Version 4)
Quarter: 2020Q1

REPORT INFORMATION
  Report Type: Report from Study
  Country: JP (occurrence: JP)
  Receive Date: 20191219
  Receipt Date: 20200313
  Transmission Date: 20200409
  Serious: Yes (Death, Life-Threatening)
  Sender: FDA-Public Use
  Company Number: JP-EISAI MEDICAL RESEARCH-EC-2019-065359

PATIENT
  Age: 94 Year
  Sex: Male
  Weight: 53 kg

DRUGS (11)
  1. ALFAROL [Concomitant]
     Active Substance: ALFACALCIDOL
  2. E KEPPRA [Concomitant]
     Active Substance: LEVETIRACETAM
  3. ADALAT CC [Concomitant]
     Active Substance: NIFEDIPINE
  4. LANSOPRAZOLE. [Concomitant]
     Active Substance: LANSOPRAZOLE
  5. MAGMITT [Concomitant]
     Active Substance: MAGNESIUM OXIDE
  6. ELIQUIS [Concomitant]
     Active Substance: APIXABAN
  7. FYCOMPA [Suspect]
     Active Substance: PERAMPANEL
     Route: 048
     Dates: start: 20190415
  8. DENOTAS [Concomitant]
     Active Substance: CALCIUM CARBONATE\CHOLECALCIFEROL\MAGNESIUM CARBONATE
  9. PURSENNID [Concomitant]
  10. VIMPAT [Concomitant]
     Active Substance: LACOSAMIDE
  11. FYCOMPA [Suspect]
     Active Substance: PERAMPANEL
     Indication: PARTIAL SEIZURES
     Route: 048
     Dates: start: 20181119, end: 20190414

REACTIONS (3)
  - Acute myocardial infarction [Fatal]
  - Anaemia [Not Recovered/Not Resolved]
  - Pneumonia aspiration [Fatal]

NARRATIVE: CASE EVENT DATE: 20190418
